FAERS Safety Report 25894648 (Version 6)
Quarter: 2025Q4

REPORT INFORMATION
  Report Type: Report from Study
  Country: US (occurrence: US)
  Receive Date: 20251008
  Receipt Date: 20251201
  Transmission Date: 20260117
  Serious: Yes (Hospitalization, Other)
  Sender: ABBVIE
  Company Number: US-ABBVIE-6489460

PATIENT
  Age: 81 Year
  Sex: Male

DRUGS (8)
  1. VENCLEXTA [Suspect]
     Active Substance: VENETOCLAX
     Indication: Acute myeloid leukaemia
     Dosage: TAKE 1 TABLET DAY 1
     Route: 048
     Dates: start: 20250923, end: 20250923
  2. VENCLEXTA [Suspect]
     Active Substance: VENETOCLAX
     Indication: Acute myeloid leukaemia
     Dosage: 2 TABLETS DAY 2
     Route: 048
     Dates: start: 20250924, end: 20250924
  3. VENCLEXTA [Suspect]
     Active Substance: VENETOCLAX
     Indication: Acute myeloid leukaemia
     Dosage: ONE 50 MG AND TWO 10 MG TABLETS DAILY
     Route: 048
     Dates: start: 20250925, end: 20250925
  4. VENCLEXTA [Suspect]
     Active Substance: VENETOCLAX
     Indication: Acute myeloid leukaemia
     Dosage: ONE 50 MG AND TWO 10 MG TABLETS DAILY DAY 4 AFTER?STOP DATE: SEP 2025
     Route: 048
     Dates: start: 20250926
  5. VENCLEXTA [Suspect]
     Active Substance: VENETOCLAX
     Indication: Acute myeloid leukaemia
     Dosage: STOP DATE: 2025
     Route: 048
     Dates: start: 202509
  6. VENCLEXTA [Suspect]
     Active Substance: VENETOCLAX
     Indication: Acute myeloid leukaemia
     Route: 048
     Dates: start: 202509, end: 202509
  7. VENCLEXTA [Suspect]
     Active Substance: VENETOCLAX
     Indication: Acute myeloid leukaemia
     Route: 048
     Dates: start: 202509, end: 202509
  8. VENCLEXTA [Suspect]
     Active Substance: VENETOCLAX
     Indication: Acute myeloid leukaemia
     Dosage: 2 TABLETS OF 100 MG ONCE DAILY
     Route: 048
     Dates: start: 2025, end: 2025

REACTIONS (24)
  - Pneumonia [Unknown]
  - Hospitalisation [Recovered/Resolved]
  - Platelet count decreased [Unknown]
  - Periorbital oedema [Unknown]
  - Appetite disorder [Unknown]
  - Abdominal distension [Unknown]
  - Flatulence [Unknown]
  - Lethargy [Unknown]
  - Affective disorder [Unknown]
  - Fatigue [Unknown]
  - Decreased interest [Unknown]
  - Full blood count decreased [Unknown]
  - Pulmonary oedema [Unknown]
  - Epistaxis [Unknown]
  - Dry throat [Unknown]
  - Infusion site swelling [Unknown]
  - Eye swelling [Unknown]
  - Swelling face [Unknown]
  - Feeling cold [Unknown]
  - Ear haemorrhage [Unknown]
  - Malaise [Unknown]
  - Fluid retention [Unknown]
  - Blast cell count increased [Unknown]
  - Hospitalisation [Unknown]

NARRATIVE: CASE EVENT DATE: 20250101
